FAERS Safety Report 8314537-6 (Version None)
Quarter: 2012Q2

REPORT INFORMATION
  Report Type: 
  Country: None (occurrence: None)
  Receive Date: 20120426
  Receipt Date: 20120425
  Transmission Date: 20120825
  Serious: Yes (Death)
  Sender: FDA-Public Use
  Company Number: US-BAYER-2010-008387

PATIENT
  Sex: Male

DRUGS (5)
  1. NEXAVAR [Suspect]
     Indication: HEPATIC NEOPLASM MALIGNANT
     Dosage: 400 MG, BID
     Route: 048
     Dates: start: 20101201, end: 20101201
  2. MEGACE [Concomitant]
     Dosage: UNK
     Dates: start: 20101202
  3. TRAMADOL HCL [Concomitant]
     Dosage: UNK
     Dates: start: 20101202
  4. MULTIVITAMIN [Concomitant]
     Dosage: UNK
     Dates: start: 20101202
  5. IRON [FERROUS SULFATE] [Concomitant]
     Dosage: UNK
     Dates: start: 20101202

REACTIONS (1)
  - HEPATIC NEOPLASM MALIGNANT [None]
